FAERS Safety Report 19894155 (Version 1)
Quarter: 2021Q3

REPORT INFORMATION
  Report Type: Spontaneous
  Country: US (occurrence: US)
  Receive Date: 20210928
  Receipt Date: 20210928
  Transmission Date: 20211014
  Serious: Yes (Hospitalization)
  Sender: FDA-Public Use
  Company Number: None

PATIENT
  Age: 51 Year
  Sex: Male
  Weight: 109.71 kg

DRUGS (6)
  1. PROAIR HFA [Concomitant]
     Active Substance: ALBUTEROL SULFATE
  2. ESOMEPRAZOLE 40MG DAILY [Concomitant]
  3. MELOXICAM 15MG ONCE DAILY [Concomitant]
  4. REGEN?COV [Suspect]
     Active Substance: CASIRIVIMAB\IMDEVIMAB
     Indication: COVID-19
     Route: 058
     Dates: start: 20210923, end: 20210923
  5. VIAGRA 50MG DAILY PRN [Concomitant]
  6. GABAPENTIN 300MG BID [Concomitant]

REACTIONS (4)
  - Oxygen saturation decreased [None]
  - Breath sounds abnormal [None]
  - Dyspnoea [None]
  - Condition aggravated [None]

NARRATIVE: CASE EVENT DATE: 20210923
